FAERS Safety Report 4794246-0 (Version None)
Quarter: 2005Q4

REPORT INFORMATION
  Report Type: 
  Country: None (occurrence: None)
  Receive Date: 20051011
  Receipt Date: 20050926
  Transmission Date: 20060501
  Serious: Yes (Other)
  Sender: FDA-Public Use
  Company Number: US-GLAXOSMITHKLINE-A0575884A

PATIENT
  Age: 26 Year
  Sex: Female
  Weight: 72.7 kg

DRUGS (4)
  1. WELLBUTRIN XL [Suspect]
     Indication: DEPRESSION
     Dosage: 150MG PER DAY
     Route: 048
     Dates: start: 20050923, end: 20050923
  2. ZOLOFT [Concomitant]
     Indication: PANIC ATTACK
     Dosage: 50MG PER DAY
     Route: 048
     Dates: start: 20050916, end: 20050923
  3. DEPO-PROVERA [Concomitant]
     Indication: ORAL CONTRACEPTION
     Dates: start: 20050801
  4. SEROQUEL [Concomitant]
     Dosage: 25MG PER DAY
     Route: 048

REACTIONS (3)
  - ELECTROCARDIOGRAM QRS COMPLEX ABNORMAL [None]
  - TACHYCARDIA [None]
  - VENTRICULAR PRE-EXCITATION [None]
